FAERS Safety Report 21491084 (Version 1)
Quarter: 2022Q4

REPORT INFORMATION
  Report Type: Report from Study
  Country: NL (occurrence: NL)
  Receive Date: 20221021
  Receipt Date: 20221021
  Transmission Date: 20230113
  Serious: Yes (Other)
  Sender: FDA-Public Use
  Company Number: NL-VER-202200121

PATIENT
  Age: 87 Year
  Sex: Male

DRUGS (3)
  1. TRIPTORELIN PAMOATE [Suspect]
     Active Substance: TRIPTORELIN PAMOATE
     Indication: Product used for unknown indication
     Route: 030
     Dates: start: 20210408
  2. ALENDRONIC ACID [Concomitant]
     Active Substance: ALENDRONIC ACID
     Route: 065
  3. CALCI-BONED [Concomitant]
     Route: 065

REACTIONS (2)
  - Metastasis [Recovering/Resolving]
  - Intestinal metastasis [Recovering/Resolving]
